FAERS Safety Report 20289563 (Version 2)
Quarter: 2022Q1

REPORT INFORMATION
  Report Type: Report from Study
  Country: IT (occurrence: IT)
  Receive Date: 20220104
  Receipt Date: 20220208
  Transmission Date: 20220423
  Serious: Yes (Other)
  Sender: FDA-Public Use
  Company Number: IT-NOVARTISPH-NVSC2021IT125941

PATIENT
  Age: 45 Year
  Sex: Female

DRUGS (8)
  1. KISQALI [Suspect]
     Active Substance: RIBOCICLIB
     Indication: Product used for unknown indication
     Dosage: 3 DF, QD (3 TABLETS A DAY)
     Route: 048
     Dates: start: 20210504
  2. FOLINA [Concomitant]
     Indication: Product used for unknown indication
     Dosage: 5 MG
     Route: 065
  3. FOLINA [Concomitant]
     Dosage: 0.5 MG, BID
     Route: 065
  4. ASCORBIC ACID\FERRIC PYROPHOSPHATE [Concomitant]
     Active Substance: ASCORBIC ACID\FERRIC PYROPHOSPHATE
     Indication: Product used for unknown indication
     Dosage: UNK
     Route: 065
  5. HEPARIN [Concomitant]
     Active Substance: HEPARIN SODIUM
     Indication: Product used for unknown indication
     Dosage: UNK
     Route: 065
  6. ENOXAPARIN [Concomitant]
     Active Substance: ENOXAPARIN
     Indication: Product used for unknown indication
     Dosage: 4000
     Route: 065
  7. LETROZOLE [Concomitant]
     Active Substance: LETROZOLE
     Indication: Product used for unknown indication
     Dosage: UNK
     Route: 065
  8. DOBETIN [Concomitant]
     Indication: Product used for unknown indication
     Dosage: 1 DOSAGE FORM, QW (1 VIAL/WEEK)
     Route: 065

REACTIONS (3)
  - Haemoglobin decreased [Unknown]
  - Leukopenia [Unknown]
  - Blood creatinine increased [Unknown]

NARRATIVE: CASE EVENT DATE: 20210601
